FAERS Safety Report 17262673 (Version 4)
Quarter: 2020Q3

REPORT INFORMATION
  Report Type: Report from Study
  Country: US (occurrence: US)
  Receive Date: 20200113
  Receipt Date: 20200928
  Transmission Date: 20201102
  Serious: No
  Sender: FDA-Public Use
  Company Number: NVSC2020US005168

PATIENT
  Sex: Male

DRUGS (1)
  1. GILENYA [Suspect]
     Active Substance: FINGOLIMOD HYDROCHLORIDE
     Indication: MULTIPLE SCLEROSIS
     Dosage: 0.5 MG, QD
     Route: 048
     Dates: start: 201505

REACTIONS (6)
  - Irritability [Unknown]
  - Hypoaesthesia [Unknown]
  - Anxiety [Unknown]
  - Mood altered [Unknown]
  - White blood cell count decreased [Unknown]
  - Off label use [Unknown]
